FAERS Safety Report 8799330 (Version 3)
Quarter: 2012Q4

REPORT INFORMATION
  Report Type: 
  Country: JP (occurrence: JP)
  Receive Date: 20120919
  Receipt Date: 20121113
  Transmission Date: 20130627
  Serious: Yes (Other)
  Sender: FDA-Public Use
  Company Number: JP-PFIZER INC-2012229843

PATIENT
  Age: 59 Year
  Sex: Female

DRUGS (7)
  1. MIGLITOL [Suspect]
     Indication: DIABETES MELLITUS
     Dosage: 50 mg, 3x/day
     Route: 048
     Dates: start: 20120616, end: 20120616
  2. MIGLITOL [Suspect]
     Dosage: 50 mg, 1x/day
     Route: 048
     Dates: start: 20120617, end: 20120628
  3. MIGLITOL [Suspect]
     Dosage: 50 mg, 2x/day
     Route: 048
     Dates: start: 20120629, end: 20120727
  4. METGLUCO [Concomitant]
     Dosage: UNK
     Dates: end: 20120731
  5. ACTOS [Concomitant]
     Dosage: UNK
     Dates: start: 20101104
  6. LIPITOR [Concomitant]
     Dosage: UNK
     Dates: start: 20100909
  7. ASPIRIN [Concomitant]
     Dosage: UNK
     Dates: start: 20100909

REACTIONS (11)
  - Renal impairment [Recovered/Resolved]
  - Proteinuria [Recovered/Resolved]
  - Blood glucose increased [Not Recovered/Not Resolved]
  - Loss of consciousness [Unknown]
  - Hyperhidrosis [Not Recovered/Not Resolved]
  - Fatigue [Unknown]
  - Abdominal distension [Recovered/Resolved]
  - Decreased appetite [Recovered/Resolved]
  - Tachycardia [Recovered/Resolved]
  - White blood cell count increased [Recovered/Resolved]
  - Blood pressure decreased [Recovered/Resolved]
